FAERS Safety Report 6356742-4 (Version None)
Quarter: 2009Q3

REPORT INFORMATION
  Report Type: 
  Country: None (occurrence: None)
  Receive Date: 20090915
  Receipt Date: 20090908
  Transmission Date: 20100115
  Serious: Yes (Other)
  Sender: FDA-Public Use
  Company Number: FR-BRISTOL-MYERS SQUIBB COMPANY-14773998

PATIENT

DRUGS (1)
  1. SPRYCEL [Suspect]

REACTIONS (1)
  - AUTOIMMUNE THYROIDITIS [None]
